FAERS Safety Report 16988107 (Version 1)
Quarter: 2019Q4

REPORT INFORMATION
  Report Type: Spontaneous
  Country: US (occurrence: US)
  Receive Date: 20190919
  Receipt Date: 20190919
  Transmission Date: 20200122
  Serious: No
  Sender: FDA-Public Use
  Company Number: None

PATIENT
  Age: 63 Year
  Sex: Male

DRUGS (1)
  1. TRUVADA [Suspect]
     Active Substance: EMTRICITABINE\TENOFOVIR DISOPROXIL FUMARATE
     Dosage: ?          OTHER DOSE:200-300 DF;?
     Route: 048
     Dates: start: 201904, end: 20190919

REACTIONS (2)
  - Renal impairment [None]
  - Albumin urine present [None]

NARRATIVE: CASE EVENT DATE: 20190919
